FAERS Safety Report 9665457 (Version 4)
Quarter: 2013Q4

REPORT INFORMATION
  Report Type: Spontaneous
  Country: US (occurrence: US)
  Receive Date: 20131104
  Receipt Date: 20131126
  Transmission Date: 20140711
  Serious: No
  Sender: FDA-Public Use
  Company Number: US-PFIZER INC-2013064167

PATIENT
  Age: 70 Year
  Sex: Male

DRUGS (15)
  1. LYRICA [Suspect]
     Dosage: 150 MG CAPSULE, 1 CAPSULE BY ORAL ROUTE 2 TIMES PER DAY
     Route: 048
  2. LIPITOR [Suspect]
     Dosage: 10 MG, 1X/DAY
     Route: 048
  3. AMLODIPINE [Concomitant]
     Dosage: 5 MG, 1X/DAY
  4. SPIRIVA [Concomitant]
     Dosage: 18 UG, 1X/DAY INHALED
  5. ARFORMOTEROL TARTRATE [Concomitant]
     Dosage: UNK
  6. TRAMADOL [Concomitant]
     Dosage: 50 MG, VERY 4-6 HOURS PRN
     Route: 048
  7. SINGULAIR [Concomitant]
     Dosage: 10 MG, 1X/DAY
     Route: 048
  8. PLAVIX [Concomitant]
     Dosage: 75 MG, 1X/DAY
     Route: 048
  9. OMEPRAZOLE [Concomitant]
     Dosage: 40 MG, 2X/DAY BEFORE A MEAL
     Route: 048
  10. METOPROLOL SUCCINATE ER [Concomitant]
     Dosage: 50 MG, 1X/DAY
  11. LIDODERM [Concomitant]
     Dosage: 5 % FILM: SIG: 1 PATCH APPLIES TOPICALLY ONE A DAY
  12. NITROQUICK [Concomitant]
     Indication: CHEST PAIN
     Dosage: 0.4 MG SUBLINGUALLY EVERY 5 MINUTES PRN, AS NEEDED
  13. CLOBETASOL [Concomitant]
     Dosage: UNK
  14. ASPIRIN [Concomitant]
     Dosage: 81 MG, 1X/DAY
     Route: 048
  15. BROVANA [Concomitant]
     Dosage: UNK

REACTIONS (2)
  - Macule [Unknown]
  - Memory impairment [Unknown]
